FAERS Safety Report 4836730-7 (Version None)
Quarter: 2005Q4

REPORT INFORMATION
  Report Type: 
  Country: None (occurrence: None)
  Receive Date: 20051121
  Receipt Date: 20051103
  Transmission Date: 20060501
  Serious: Yes (Hospitalization)
  Sender: FDA-Public Use
  Company Number: 219523

PATIENT
  Age: 56 Year
  Sex: Male

DRUGS (6)
  1. AVASTIN [Suspect]
     Indication: RECTAL CANCER
     Dosage: 25 MG/ML, INTRAVENOUS
     Route: 042
     Dates: start: 20050915
  2. IRINOTECAN HCL [Suspect]
     Indication: RECTAL CANCER
     Dosage: 20 MG/ML, INTRAVENOUS
     Route: 042
     Dates: start: 20050915
  3. FLUOROURACIL [Concomitant]
  4. CITODON (ACETAMINOPHEN , CODEINE PHOSPHATE) [Concomitant]
  5. DETRUSITOL (TOLTERODINE TARTRATE) [Concomitant]
  6. UNKNOWN DRUG (GENERIC COMPONENT(S) NOT KNOWN) [Suspect]
     Indication: RECTAL CANCER
     Dates: start: 20050915

REACTIONS (3)
  - LEUKOPENIA [None]
  - NEUTROPENIC SEPSIS [None]
  - VENOUS THROMBOSIS [None]
